FAERS Safety Report 16896547 (Version 1)
Quarter: 2019Q4

REPORT INFORMATION
  Report Type: Spontaneous
  Country: CN (occurrence: CN)
  Receive Date: 20191008
  Receipt Date: 20191008
  Transmission Date: 20200122
  Serious: Yes (Other)
  Sender: FDA-Public Use
  Company Number: CN-PFIZER INC-2019426311

PATIENT
  Age: 3 Year
  Sex: Male
  Weight: 14 kg

DRUGS (1)
  1. SOLU-MEDROL [Suspect]
     Active Substance: METHYLPREDNISOLONE SODIUM SUCCINATE
     Indication: WHEEZING
     Dosage: 28 MG, 1X/DAY
     Route: 041
     Dates: start: 20190903, end: 20190903

REACTIONS (5)
  - Rash pruritic [Recovering/Resolving]
  - Affective disorder [Recovering/Resolving]
  - Wheezing [Recovering/Resolving]
  - Anaphylactoid reaction [Recovering/Resolving]
  - Hypersensitivity [Recovering/Resolving]

NARRATIVE: CASE EVENT DATE: 20190903
